FAERS Safety Report 8887311 (Version 2)
Quarter: 2012Q4

REPORT INFORMATION
  Report Type: 
  Country: US (occurrence: US)
  Receive Date: 20121101
  Receipt Date: 20121220
  Transmission Date: 20130627
  Serious: Yes (Other)
  Sender: FDA-Public Use
  Company Number: US-PFIZER INC-2012272203

PATIENT
  Age: 72 Year
  Sex: Female
  Weight: 57.6 kg

DRUGS (6)
  1. EFFEXOR XR [Suspect]
     Indication: DEPRESSION
     Dosage: 225 mg, daily
     Route: 048
  2. EFFEXOR XR [Suspect]
     Indication: ANXIETY
  3. VENLAFAXINE HYDROCHLORIDE [Suspect]
     Dosage: UNK
  4. LISINOPRIL [Concomitant]
     Indication: BLOOD PRESSURE HIGH
     Dosage: 20 mg, daily
  5. METFORMIN [Concomitant]
     Indication: DIABETES
     Dosage: 1000 mg, daily
  6. SYNTHROID [Concomitant]
     Indication: THYROID DISORDER
     Dosage: 50 ug, daily

REACTIONS (4)
  - Breast cancer female [Unknown]
  - Recurrent cancer [Unknown]
  - Nausea [Unknown]
  - Gastric disorder [Unknown]
